FAERS Safety Report 10527415 (Version 2)
Quarter: 2014Q4

REPORT INFORMATION
  Report Type: Report from Study
  Country: US (occurrence: US)
  Receive Date: 20141020
  Receipt Date: 20141215
  Transmission Date: 20150528
  Serious: Yes (Hospitalization)
  Sender: FDA-Public Use
  Company Number: US-SA-2014SA140618

PATIENT
  Sex: Male

DRUGS (2)
  1. APIDRA [Suspect]
     Active Substance: INSULIN GLULISINE
     Indication: DIABETES MELLITUS
     Route: 065
  2. LANTUS [Suspect]
     Active Substance: INSULIN GLARGINE
     Dosage: DOSE:80 UNIT(S)
     Route: 065

REACTIONS (5)
  - Infection [Unknown]
  - Blood glucose abnormal [Unknown]
  - Drug dose omission [Unknown]
  - Drug administration error [Unknown]
  - Limb injury [Unknown]

NARRATIVE: CASE EVENT DATE: 2014
